FAERS Safety Report 14128511 (Version 9)
Quarter: 2019Q3

REPORT INFORMATION
  Report Type: Report from Study
  Country: None (occurrence: US)
  Receive Date: 20171026
  Receipt Date: 20190701
  Transmission Date: 20191004
  Serious: Yes (Other)
  Sender: FDA-Public Use
  Company Number: US-ABBVIE-17K-163-2137600-00

PATIENT
  Age: 61 Year
  Sex: Male

DRUGS (5)
  1. HUMIRA [Suspect]
     Active Substance: ADALIMUMAB
     Route: 058
  2. HUMIRA [Suspect]
     Active Substance: ADALIMUMAB
     Indication: COLITIS ULCERATIVE
     Route: 058
  3. HUMIRA [Suspect]
     Active Substance: ADALIMUMAB
     Route: 058
  4. HUMIRA [Suspect]
     Active Substance: ADALIMUMAB
     Route: 058
  5. HUMIRA [Suspect]
     Active Substance: ADALIMUMAB
     Route: 058

REACTIONS (19)
  - Gastrointestinal fistula [Not Recovered/Not Resolved]
  - Stoma creation [Unknown]
  - Wound complication [Unknown]
  - Peripheral vascular disorder [Unknown]
  - Procedural pain [Unknown]
  - Hernia [Unknown]
  - Surgical failure [Not Recovered/Not Resolved]
  - Fistula discharge [Not Recovered/Not Resolved]
  - Impaired healing [Unknown]
  - Pain in extremity [Unknown]
  - Fistula discharge [Unknown]
  - Wound secretion [Unknown]
  - Dehydration [Unknown]
  - Rash [Unknown]
  - Hypotension [Unknown]
  - Limb injury [Unknown]
  - Blood glucose increased [Unknown]
  - Fistula [Unknown]
  - Loss of consciousness [Unknown]

NARRATIVE: CASE EVENT DATE: 2017
